FAERS Safety Report 21475680 (Version 2)
Quarter: 2022Q4

REPORT INFORMATION
  Report Type: Spontaneous
  Country: US (occurrence: US)
  Receive Date: 20221019
  Receipt Date: 20221102
  Transmission Date: 20230113
  Serious: No
  Sender: FDA-Public Use
  Company Number: US-LUPIN PHARMACEUTICALS INC.-2022-12027

PATIENT

DRUGS (1)
  1. LISINOPRIL [Suspect]
     Active Substance: LISINOPRIL
     Indication: Hypertension
     Dosage: UNK UNK, QD (ONCE A DAY)
     Route: 048
     Dates: start: 2007, end: 202210

REACTIONS (2)
  - Recalled product administered [Unknown]
  - Feeling abnormal [Recovered/Resolved]

NARRATIVE: CASE EVENT DATE: 20221001
